FAERS Safety Report 15673715 (Version 5)
Quarter: 2018Q4

REPORT INFORMATION
  Report Type: Spontaneous
  Country: ES (occurrence: ES)
  Receive Date: 20181129
  Receipt Date: 20181224
  Transmission Date: 20190205
  Serious: Yes (Other)
  Sender: FDA-Public Use
  Company Number: ES-PFIZER INC-2018493046

PATIENT
  Age: 59 Year
  Sex: Female

DRUGS (3)
  1. ETANERCEPT [Suspect]
     Active Substance: ETANERCEPT
     Indication: RHEUMATOID ARTHRITIS
     Dosage: 50 MG/2 WEEKS
  2. LEFLUNOMIDE. [Suspect]
     Active Substance: LEFLUNOMIDE
     Indication: RHEUMATOID ARTHRITIS
     Dosage: 10 MG, 1X/DAY
  3. METHOTREXATE SODIUM. [Suspect]
     Active Substance: METHOTREXATE SODIUM
     Indication: RHEUMATOID ARTHRITIS
     Dosage: 15 MG/2 WEEKS

REACTIONS (4)
  - Staphylococcal infection [Unknown]
  - Chorea [Unknown]
  - Device related infection [Unknown]
  - Post procedural infection [Unknown]
